FAERS Safety Report 5141113-9 (Version None)
Quarter: 2006Q4

REPORT INFORMATION
  Report Type: 
  Country: None (occurrence: None)
  Receive Date: 20061026
  Receipt Date: 20061019
  Transmission Date: 20070319
  Serious: Yes (Other)
  Sender: FDA-Public Use
  Company Number: GXKR2006AU06628

PATIENT
  Age: 42 Year
  Sex: Female
  Weight: 68 kg

DRUGS (1)
  1. AMOXICILLIN [Suspect]
     Dosage: 1X TID, ORAL
     Route: 048
     Dates: start: 20061012

REACTIONS (3)
  - GLOSSITIS [None]
  - GLOSSODYNIA [None]
  - RESTLESSNESS [None]
